FAERS Safety Report 18982350 (Version 1)
Quarter: 2021Q1

REPORT INFORMATION
  Report Type: Spontaneous
  Country: US (occurrence: US)
  Receive Date: 20210308
  Receipt Date: 20210308
  Transmission Date: 20210420
  Serious: No
  Sender: FDA-Public Use
  Company Number: US-GALDERMA-US2020044035

PATIENT
  Sex: Male

DRUGS (2)
  1. DIFFERIN GEL [Suspect]
     Active Substance: ADAPALENE
     Indication: ACNE
     Dosage: 0.1%
     Route: 061
     Dates: start: 2020
  2. BENZOYL PEROXIDE (BENZOYL PEROXIDE) [Suspect]
     Active Substance: BENZOYL PEROXIDE
     Indication: ACNE
     Dosage: 10%
     Route: 061
     Dates: start: 2020

REACTIONS (3)
  - Skin discolouration [Unknown]
  - Skin burning sensation [Unknown]
  - Drug ineffective [Unknown]

NARRATIVE: CASE EVENT DATE: 2020
